FAERS Safety Report 9604318 (Version 1)
Quarter: 2013Q4

REPORT INFORMATION
  Report Type: Spontaneous
  Country: US (occurrence: US)
  Receive Date: 20131008
  Receipt Date: 20131008
  Transmission Date: 20140711
  Serious: Yes (Other)
  Sender: FDA-Public Use
  Company Number: US-ELI_LILLY_AND_COMPANY-US201309010360

PATIENT
  Sex: Female

DRUGS (4)
  1. CYMBALTA [Suspect]
     Indication: NEUROPATHY PERIPHERAL
     Dosage: 60 MG, QD
     Dates: start: 2008
  2. CYMBALTA [Suspect]
     Dosage: 30 MG, UNKNOWN
     Route: 065
     Dates: start: 201309
  3. CYMBALTA [Suspect]
     Dosage: 40 MG, UNKNOWN
     Route: 065
     Dates: start: 2012, end: 2012
  4. CYMBALTA [Suspect]
     Dosage: 20 MG, UNKNOWN
     Route: 065
     Dates: start: 2012, end: 2012

REACTIONS (4)
  - Breast cancer recurrent [Not Recovered/Not Resolved]
  - Intentional drug misuse [Not Recovered/Not Resolved]
  - Off label use [Not Recovered/Not Resolved]
  - Drug dose omission [Unknown]
